FAERS Safety Report 5369769-6 (Version None)
Quarter: 2007Q2

REPORT INFORMATION
  Report Type: 
  Country: None (occurrence: None)
  Receive Date: 20070621
  Receipt Date: 20070501
  Transmission Date: 20071010
  Serious: Yes (Hospitalization)
  Sender: FDA-Public Use
  Company Number: 4581

PATIENT
  Age: 30 Year
  Sex: Female
  Weight: 94.3482 kg

DRUGS (8)
  1. AMNESTEEM [Suspect]
     Indication: ACNE CYSTIC
     Dosage: 40 MG QD PO
     Route: 048
     Dates: start: 20070327
  2. ATIVAN [Concomitant]
  3. LUNESTA [Concomitant]
  4. BACLOFEN [Concomitant]
  5. WELLBUTRIN [Concomitant]
  6. ABLIFY [Concomitant]
  7. LEXAPRO [Concomitant]
  8. TOPAMAX [Concomitant]

REACTIONS (1)
  - SUICIDAL IDEATION [None]
